FAERS Safety Report 21968032 (Version 1)
Quarter: 2023Q1

REPORT INFORMATION
  Report Type: Spontaneous
  Country: US (occurrence: US)
  Receive Date: 20230208
  Receipt Date: 20230208
  Transmission Date: 20230417
  Serious: Yes (Death)
  Sender: FDA-Public Use
  Company Number: US-NOVAST LABORATORIES INC.-2023NOV000057

PATIENT
  Age: 50 Year
  Sex: Female

DRUGS (6)
  1. QUININE [Suspect]
     Active Substance: QUININE
     Indication: Product used for unknown indication
     Dosage: UNKNOWN
     Route: 065
  2. FENTANYL [Suspect]
     Active Substance: FENTANYL
     Indication: Product used for unknown indication
     Dosage: UNKNOWN
     Route: 065
  3. ACETYLFENTANYL [Suspect]
     Active Substance: ACETYLFENTANYL
     Indication: Product used for unknown indication
     Dosage: UNKNOWN
     Route: 065
  4. DESPROPIONYLFENTANYL [Suspect]
     Active Substance: DESPROPIONYLFENTANYL
     Indication: Product used for unknown indication
     Dosage: UNKNOWN
     Route: 065
  5. COCAINE [Suspect]
     Active Substance: COCAINE
     Indication: Product used for unknown indication
     Dosage: UNKNOWN
     Route: 065
  6. PROMETHAZINE [Suspect]
     Active Substance: PROMETHAZINE HYDROCHLORIDE
     Indication: Product used for unknown indication
     Dosage: UNKNOWN
     Route: 065

REACTIONS (1)
  - Drug abuse [Fatal]
